FAERS Safety Report 26046474 (Version 1)
Quarter: 2025Q4

REPORT INFORMATION
  Report Type: Spontaneous
  Country: US (occurrence: US)
  Receive Date: 20251114
  Receipt Date: 20251114
  Transmission Date: 20260118
  Serious: No
  Sender: ELI LILLY AND COMPANY
  Company Number: US-ELI_LILLY_AND_COMPANY-US202510029533

PATIENT
  Age: 68 Year

DRUGS (1)
  1. ZEPBOUND [Suspect]
     Active Substance: TIRZEPATIDE
     Indication: Product used for unknown indication
     Dosage: 7.5 MG, UNKNOWN
     Route: 065

REACTIONS (5)
  - Gastrointestinal disorder [Unknown]
  - Nausea [Unknown]
  - Diarrhoea [Unknown]
  - Abdominal pain upper [Unknown]
  - Eructation [Unknown]

NARRATIVE: CASE EVENT DATE: 20251001
